FAERS Safety Report 7052833-3 (Version None)
Quarter: 2010Q4

REPORT INFORMATION
  Report Type: 
  Country: None (occurrence: None)
  Receive Date: 20101008
  Receipt Date: 20100930
  Transmission Date: 20110411
  Serious: Yes (Hospitalization)
  Sender: FDA-Public Use
  Company Number: 2010115729

PATIENT
  Age: 59 Year
  Sex: Female

DRUGS (8)
  1. DALTEPARIN SODIUM [Suspect]
     Indication: LUNG NEOPLASM MALIGNANT
     Dates: start: 20100803
  2. FOLIC ACID [Concomitant]
  3. ACETAMINOPHEN [Concomitant]
  4. DICLOFENAC SODIUM [Concomitant]
  5. MORPHINE SULFATE INJ [Concomitant]
  6. ORAMORPH SR [Concomitant]
  7. CIPROFLOXACIN [Concomitant]
  8. OMEPRAZOLE [Concomitant]

REACTIONS (1)
  - BACK PAIN [None]
